FAERS Safety Report 5329505-6 (Version None)
Quarter: 2007Q1

REPORT INFORMATION
  Report Type: 
  Country: None (occurrence: None)
  Receive Date: 20070223
  Receipt Date: 20060202
  Transmission Date: 20070707
  Serious: Yes (Disabling)
  Sender: FDA-Public Use
  Company Number: WAES 0602USA00543

PATIENT
  Age: 71 Year
  Sex: Male

DRUGS (9)
  1. ZOCOR [Suspect]
     Indication: BLOOD CHOLESTEROL INCREASED
     Dosage: 20 MG/DAILY/PO
     Route: 048
     Dates: start: 20051205, end: 20051219
  2. ZOCOR [Suspect]
     Indication: CORONARY ARTERY DISEASE
     Dosage: 20 MG/DAILY/PO
     Route: 048
     Dates: start: 20051205, end: 20051219
  3. DIGITEK [Concomitant]
  4. FORADIL [Concomitant]
  5. MICARDIS [Concomitant]
  6. TOPROL-XL [Concomitant]
  7. ASPIRIN [Concomitant]
  8. FOLIC ACID [Concomitant]
  9. IRON [Concomitant]

REACTIONS (4)
  - ARTHRALGIA [None]
  - FATIGUE [None]
  - MUSCLE ATROPHY [None]
  - MYALGIA [None]
